FAERS Safety Report 4846161-1 (Version None)
Quarter: 2005Q4

REPORT INFORMATION
  Report Type: 
  Country: None (occurrence: None)
  Receive Date: 20051206
  Receipt Date: 20051129
  Transmission Date: 20060501
  Serious: Yes (Hospitalization, Other)
  Sender: FDA-Public Use
  Company Number: US-MERCK-0512USA00187

PATIENT
  Age: 61 Year
  Sex: Female
  Weight: 64 kg

DRUGS (15)
  1. VIOXX [Suspect]
     Indication: ARTHRITIS
     Route: 048
  2. NORVASC [Concomitant]
     Route: 065
  3. ASPIRIN [Concomitant]
     Route: 065
  4. PLAVIX [Concomitant]
     Route: 065
  5. LIPITOR [Concomitant]
     Route: 065
  6. ZOLOFT [Concomitant]
     Route: 065
  7. NITRO [Concomitant]
     Route: 065
  8. MECLIZINE [Concomitant]
     Route: 065
  9. SINGULAIR [Concomitant]
     Route: 065
  10. VENTOLIN [Concomitant]
     Route: 065
  11. RANITIDINE [Concomitant]
     Route: 065
  12. DIAZEPAM [Concomitant]
     Route: 065
  13. HYDROCODONE BITARTRATE [Concomitant]
     Route: 065
  14. FAMOTIDINE [Concomitant]
     Route: 065
  15. CHOLINE MAGNESIUM TRISALICYLATE [Concomitant]
     Route: 065

REACTIONS (15)
  - CARDIAC DISORDER [None]
  - CEREBROVASCULAR ACCIDENT [None]
  - CHEST PAIN [None]
  - DEEP VEIN THROMBOSIS [None]
  - DYSPNOEA [None]
  - EAR INFECTION [None]
  - EMOTIONAL DISORDER [None]
  - ESSENTIAL HYPERTENSION [None]
  - FATIGUE [None]
  - HYPERCHOLESTEROLAEMIA [None]
  - LEFT VENTRICULAR FAILURE [None]
  - NERVOUSNESS [None]
  - ORTHOPNOEA [None]
  - SKIN DISORDER [None]
  - TRANSIENT ISCHAEMIC ATTACK [None]
